FAERS Safety Report 24689607 (Version 2)
Quarter: 2024Q4

REPORT INFORMATION
  Report Type: Spontaneous
  Country: US (occurrence: US)
  Receive Date: 20241203
  Receipt Date: 20241206
  Transmission Date: 20250115
  Serious: Yes (Other)
  Sender: RANBAXY
  Company Number: US-SUN PHARMACEUTICAL INDUSTRIES LTD-2024R1-482121

PATIENT
  Age: 12 Year
  Sex: Male

DRUGS (6)
  1. DOXORUBICIN [Suspect]
     Active Substance: DOXORUBICIN
     Indication: Hereditary non-polyposis colorectal cancer syndrome
     Dosage: UNK
     Route: 065
  2. DOXORUBICIN [Suspect]
     Active Substance: DOXORUBICIN
     Indication: Osteosarcoma
  3. METHOTREXATE [Suspect]
     Active Substance: METHOTREXATE
     Indication: Hereditary non-polyposis colorectal cancer syndrome
     Dosage: UNK
     Route: 065
  4. METHOTREXATE [Suspect]
     Active Substance: METHOTREXATE
     Indication: Osteosarcoma
  5. CISPLATIN [Suspect]
     Active Substance: CISPLATIN
     Indication: Hereditary non-polyposis colorectal cancer syndrome
     Dosage: UNK
     Route: 065
  6. CISPLATIN [Suspect]
     Active Substance: CISPLATIN
     Indication: Osteosarcoma

REACTIONS (1)
  - Langerhans^ cell histiocytosis [Unknown]
